APPROVED DRUG PRODUCT: PYRIDOSTIGMINE BROMIDE
Active Ingredient: PYRIDOSTIGMINE BROMIDE
Strength: 30MG
Dosage Form/Route: TABLET;ORAL
Application: N020414 | Product #001
Applicant: UNITED STATES ARMY OFFICE SURGEON GENERAL
Approved: Feb 5, 2003 | RLD: No | RS: No | Type: DISCN